FAERS Safety Report 9394238 (Version 1)
Quarter: 2013Q3

REPORT INFORMATION
  Report Type: Report from Study
  Country: CN (occurrence: CN)
  Receive Date: 20130711
  Receipt Date: 20130711
  Transmission Date: 20140515
  Serious: Yes (Other)
  Sender: FDA-Public Use
  Company Number: CN-ROCHE-1245071

PATIENT
  Sex: 0

DRUGS (6)
  1. CAPECITABINE [Suspect]
     Indication: GASTRIC CANCER
     Dosage: DAYS 1-14 OF EACH CYCLE
     Route: 048
  2. OXALIPLATIN [Suspect]
     Indication: GASTRIC CANCER
     Dosage: ON DAY 1 OF EACH CYCLE
     Route: 042
  3. OXALIPLATIN [Suspect]
     Dosage: 85-100 MG/M2
     Route: 042
  4. LEUCOVORIN [Suspect]
     Indication: GASTRIC CANCER
     Dosage: ON DAY1 OF EACH CYCLE.
     Route: 042
  5. 5-FU [Suspect]
     Indication: GASTRIC CANCER
     Dosage: BOLUS
     Route: 065
  6. 5-FU [Suspect]
     Route: 065

REACTIONS (10)
  - Vomiting [Unknown]
  - Decreased appetite [Unknown]
  - Stomatitis [Unknown]
  - Diarrhoea [Unknown]
  - Palmar-plantar erythrodysaesthesia syndrome [Unknown]
  - Neurotoxicity [Unknown]
  - Neutropenia [Unknown]
  - Thrombocytopenia [Unknown]
  - Aspartate aminotransferase [Unknown]
  - Alanine aminotransferase [Unknown]
